FAERS Safety Report 6643840-0 (Version None)
Quarter: 2010Q1

REPORT INFORMATION
  Report Type: 
  Country: None (occurrence: None)
  Receive Date: 20100316
  Receipt Date: 20100308
  Transmission Date: 20100710
  Serious: Yes (Hospitalization)
  Sender: FDA-Public Use
  Company Number: TCI2010A00827

PATIENT
  Age: 51 Year
  Sex: Male

DRUGS (5)
  1. ACTOS [Suspect]
     Indication: TYPE 2 DIABETES MELLITUS
     Dosage: 30 MG (30 MG,1 D) PER ORAL
     Route: 048
     Dates: start: 20090223, end: 20090605
  2. ALPHA GLUCOSIDASE INHIBITORS [Concomitant]
  3. SULFONAMIDES, UREA DERIVATIVES [Concomitant]
  4. ANTIHYPERTENSIVES [Concomitant]
  5. HMG COA REDUCTABLE INHIBITORS [Concomitant]

REACTIONS (1)
  - ACUTE MYOCARDIAL INFARCTION [None]
